FAERS Safety Report 8776091 (Version 2)
Quarter: 2012Q4

REPORT INFORMATION
  Report Type: 
  Country: HR (occurrence: HR)
  Receive Date: 20120910
  Receipt Date: 20120924
  Transmission Date: 20130627
  Serious: Yes (Other)
  Sender: FDA-Public Use
  Company Number: HR-ABBOTT-12P-216-0977739-00

PATIENT
  Age: 77 Year
  Sex: Female

DRUGS (5)
  1. LERCANIDIPINE [Suspect]
     Indication: HYPERTENSION
     Route: 048
     Dates: start: 20120730
  2. FURSEMID [Suspect]
     Indication: PRODUCT USED FOR UNKNOWN INDICATION
  3. SULPIRID [Concomitant]
     Indication: DEPRESSION
  4. SIOFOR [Concomitant]
     Indication: TYPE 2 DIABETES MELLITUS
     Dosage: DAILY
  5. POTASSIUM CHLORIDE [Concomitant]
     Indication: HYPERTENSION

REACTIONS (2)
  - Angina pectoris [Unknown]
  - Erythema [Unknown]
